FAERS Safety Report 24176464 (Version 1)
Quarter: 2024Q3

REPORT INFORMATION
  Report Type: Spontaneous
  Country: US (occurrence: US)
  Receive Date: 20240806
  Receipt Date: 20240806
  Transmission Date: 20241017
  Serious: No
  Sender: SANOFI AVENTIS
  Company Number: US-SA-SAC20240729001573

PATIENT
  Sex: Female

DRUGS (1)
  1. DUPIXENT [Suspect]
     Active Substance: DUPILUMAB
     Indication: Dermatitis atopic
     Dosage: 300 MG, QOW
     Route: 058

REACTIONS (11)
  - Skin ulcer [Unknown]
  - Scar [Unknown]
  - Scab [Unknown]
  - Depression [Unknown]
  - Skin weeping [Unknown]
  - Nervousness [Unknown]
  - Skin haemorrhage [Unknown]
  - Weight decreased [Unknown]
  - Pain in extremity [Unknown]
  - Pain of skin [Unknown]
  - Myalgia [Unknown]
